FAERS Safety Report 4766877-5 (Version None)
Quarter: 2005Q3

REPORT INFORMATION
  Report Type: 
  Country: None (occurrence: None)
  Receive Date: 20050909
  Receipt Date: 20050826
  Transmission Date: 20060218
  Serious: Yes (Death, Other)
  Sender: FDA-Public Use
  Company Number: 2005120788

PATIENT
  Age: 15 Year
  Sex: Male

DRUGS (5)
  1. PREDNISONE [Suspect]
     Indication: LIVER TRANSPLANT
  2. VORICONAZOLE (VORICONAZOLE) [Suspect]
     Indication: ILL-DEFINED DISORDER
  3. TACROLIMUS (TACROLIUMS) [Suspect]
     Indication: LIVER TRANSPLANT
  4. MYCOPHENOLIC ACID [Suspect]
     Indication: ILL-DEFINED DISORDER
  5. CASPOFUNGIN (CASPOFUNGIN) [Suspect]
     Indication: ILL-DEFINED DISORDER

REACTIONS (9)
  - AUTOIMMUNE HEPATITIS [None]
  - BRONCHOPULMONARY ASPERGILLOSIS [None]
  - CHOLANGITIS [None]
  - HAEMOPTYSIS [None]
  - HYDROPNEUMOTHORAX [None]
  - LUNG DISORDER [None]
  - PSEUDOMONAS INFECTION [None]
  - PULMONARY CAVITATION [None]
  - RESPIRATORY FAILURE [None]
